FAERS Safety Report 9755250 (Version 1)
Quarter: 2013Q4

REPORT INFORMATION
  Report Type: Spontaneous
  Country: US (occurrence: US)
  Receive Date: 20131213
  Receipt Date: 20131213
  Transmission Date: 20140711
  Serious: No
  Sender: FDA-Public Use
  Company Number: US-GLAXOSMITHKLINE-A1014890A

PATIENT
  Sex: Male

DRUGS (2)
  1. NICODERM CQ 14MG [Suspect]
     Indication: PRODUCT USED FOR UNKNOWN INDICATION
  2. NICODERM CQ 21MG [Suspect]
     Indication: PRODUCT USED FOR UNKNOWN INDICATION

REACTIONS (3)
  - Dizziness [Unknown]
  - Vision blurred [Unknown]
  - Adverse event [Unknown]
